FAERS Safety Report 8593015-3 (Version None)
Quarter: 2012Q3

REPORT INFORMATION
  Report Type: 
  Country: None (occurrence: None)
  Receive Date: 20120814
  Receipt Date: 19900416
  Transmission Date: 20120928
  Serious: Yes (Other)
  Sender: FDA-Public Use
  Company Number: US-ROCHE-1099788

PATIENT
  Sex: Female

DRUGS (1)
  1. ACTIVASE [Suspect]
     Indication: MYOCARDIAL INFARCTION
     Route: 040

REACTIONS (3)
  - CHEST PAIN [None]
  - BRADYCARDIA [None]
  - HYPOTENSION [None]
